FAERS Safety Report 21110486 (Version 2)
Quarter: 2022Q3

REPORT INFORMATION
  Report Type: Spontaneous
  Country: PK (occurrence: PK)
  Receive Date: 20220721
  Receipt Date: 20220803
  Transmission Date: 20221026
  Serious: Yes (Hospitalization, Other)
  Sender: FDA-Public Use
  Company Number: PK-SA-SAC20220719001657

PATIENT
  Age: 60 Year
  Sex: Female

DRUGS (1)
  1. TOUJEO [Suspect]
     Active Substance: INSULIN GLARGINE
     Indication: Diabetes mellitus
     Dosage: 26/24 UNITS
     Route: 058

REACTIONS (3)
  - Cerebral haemorrhage [Unknown]
  - Myocardial infarction [Unknown]
  - Coma [Unknown]

NARRATIVE: CASE EVENT DATE: 20220701
